FAERS Safety Report 13153932 (Version 1)
Quarter: 2017Q1

REPORT INFORMATION
  Report Type: Spontaneous
  Country: US (occurrence: US)
  Receive Date: 20170126
  Receipt Date: 20170126
  Transmission Date: 20170428
  Serious: No
  Sender: FDA-Public Use
  Company Number: US-MYLANLABS-2016M1034857

PATIENT
  Sex: Female

DRUGS (3)
  1. CELECOXIB. [Suspect]
     Active Substance: CELECOXIB
     Indication: ARTHRITIS
     Dosage: 200 MG, QD
     Route: 048
     Dates: end: 2016
  2. CELECOXIB. [Suspect]
     Active Substance: CELECOXIB
     Dosage: 200 MG, BID
     Route: 048
     Dates: start: 2016
  3. AZATHIOPRINE TABLETS USP [Suspect]
     Active Substance: AZATHIOPRINE
     Indication: ARTHRITIS
     Dosage: 50 MG, TID
     Route: 048

REACTIONS (2)
  - Fatigue [Not Recovered/Not Resolved]
  - Drug effect decreased [Not Recovered/Not Resolved]
